FAERS Safety Report 8804480 (Version 3)
Quarter: 2013Q1

REPORT INFORMATION
  Report Type: Spontaneous
  Country: US (occurrence: US)
  Receive Date: 20120923
  Receipt Date: 20130107
  Transmission Date: 20140127
  Serious: Yes (Life-Threatening)
  Sender: FDA-Public Use
  Company Number: US-009507513-1208USA010404

PATIENT
  Age: 20 Year
  Sex: Male
  Weight: 125.62 kg

DRUGS (1)
  1. INVANZ [Suspect]
     Indication: APPENDICITIS
     Dosage: 1 G, QD
     Route: 042
     Dates: start: 20120815, end: 20120815

REACTIONS (2)
  - Endotracheal intubation [Recovered/Resolved]
  - Grand mal convulsion [Recovered/Resolved]
